FAERS Safety Report 6473335-9 (Version None)
Quarter: 2009Q4

REPORT INFORMATION
  Report Type: 
  Country: None (occurrence: None)
  Receive Date: 20091204
  Receipt Date: 20090525
  Transmission Date: 20100525
  Serious: Yes (Other)
  Sender: FDA-Public Use
  Company Number: IT-ELI_LILLY_AND_COMPANY-IT200809004174

PATIENT
  Sex: Female

DRUGS (11)
  1. BYETTA [Suspect]
     Indication: TYPE 2 DIABETES MELLITUS
     Dosage: 10 UG, DAILY (1/D)
     Route: 058
     Dates: start: 20080513, end: 20080101
  2. BYETTA [Suspect]
     Dosage: 10 UG, DAILY (1/D)
     Route: 058
     Dates: start: 20080101, end: 20080915
  3. LEVOPRAID [Concomitant]
     Dosage: UNK, UNKNOWN
     Route: 065
     Dates: start: 20060112
  4. XANAX [Concomitant]
     Dosage: UNK, UNKNOWN
     Route: 065
     Dates: start: 20060112
  5. PROZAC [Concomitant]
     Dosage: UNK, UNKNOWN
     Route: 065
     Dates: start: 20060112
  6. EUTIROX [Concomitant]
     Dosage: UNK, UNKNOWN
     Route: 065
     Dates: start: 20080112
  7. LUCEN [Concomitant]
     Dosage: UNK, UNKNOWN
     Route: 065
     Dates: start: 20060112
  8. DEURSIL [Concomitant]
     Dosage: UNK, UNKNOWN
     Route: 065
     Dates: start: 20060112
  9. DIURESIX [Concomitant]
     Dosage: UNK, UNKNOWN
     Route: 065
     Dates: start: 20060112
  10. ISOPTIN [Concomitant]
     Dosage: UNK, UNKNOWN
     Route: 065
     Dates: start: 20060112
  11. TICLODIPINE [Concomitant]
     Dosage: UNK, UNKNOWN
     Route: 065
     Dates: start: 20060112

REACTIONS (5)
  - ABDOMINAL PAIN [None]
  - CHRONIC LYMPHOCYTIC LEUKAEMIA [None]
  - DIARRHOEA [None]
  - PYREXIA [None]
  - VOMITING [None]
